FAERS Safety Report 8033895-3 (Version None)
Quarter: 2011Q4

REPORT INFORMATION
  Report Type: 
  Country: None (occurrence: None)
  Receive Date: 20111222
  Receipt Date: 20111212
  Transmission Date: 20120403
  Serious: Yes (Hospitalization, Other)
  Sender: FDA-Public Use
  Company Number: 2011MA017526

PATIENT
  Age: 71 Year
  Sex: Female

DRUGS (19)
  1. MOXIFLOXACIN [Concomitant]
  2. LEVAQUIN [Concomitant]
  3. POTASSIUM CHLORIDE [Concomitant]
  4. COUMADIN [Concomitant]
  5. SPIRIVA [Concomitant]
  6. ZETIA [Concomitant]
  7. CORTICOSTEREOIDS [Concomitant]
  8. CLINDAMYCIN [Concomitant]
  9. DEXAMETHASONE TAB [Concomitant]
  10. DUONEB [Concomitant]
  11. HYDROCHLOROTHIAZIDE [Concomitant]
  12. SYNTHROID [Concomitant]
  13. ATROPINE [Concomitant]
  14. DIGOXIN [Suspect]
     Indication: PRODUCT USED FOR UNKNOWN INDICATION
     Dosage: 0.125 MG;QD;PO
     Route: 048
     Dates: start: 20060815, end: 20070601
  15. MICARDIS [Concomitant]
  16. LASIX [Concomitant]
  17. HUMALOG [Concomitant]
  18. AVELOX [Concomitant]
  19. IV FLUIDS [Concomitant]

REACTIONS (35)
  - DIARRHOEA [None]
  - ABDOMINAL PAIN [None]
  - ACUTE RESPIRATORY FAILURE [None]
  - ARTHRITIS [None]
  - CARDIAC MURMUR [None]
  - BLOOD GLUCOSE INCREASED [None]
  - HEART RATE INCREASED [None]
  - SINUS HEADACHE [None]
  - FATIGUE [None]
  - DYSPNOEA EXERTIONAL [None]
  - PYREXIA [None]
  - HYPERHIDROSIS [None]
  - CARDIAC FAILURE CONGESTIVE [None]
  - UPPER RESPIRATORY TRACT INFECTION [None]
  - ORTHOPNOEA [None]
  - NAUSEA [None]
  - PULMONARY HYPERTENSION [None]
  - DEHYDRATION [None]
  - CONDITION AGGRAVATED [None]
  - SCAR [None]
  - ATRIAL FIBRILLATION [None]
  - ELECTROCARDIOGRAM T WAVE AMPLITUDE DECREASED [None]
  - BRADYCARDIA [None]
  - CHILLS [None]
  - RENAL FAILURE ACUTE [None]
  - VENTRICULAR EXTRASYSTOLES [None]
  - NASAL CONGESTION [None]
  - PRODUCTIVE COUGH [None]
  - FLUID RETENTION [None]
  - CREPITATIONS [None]
  - ASTHENIA [None]
  - CHRONIC OBSTRUCTIVE PULMONARY DISEASE [None]
  - RASH [None]
  - CARDIOACTIVE DRUG LEVEL INCREASED [None]
  - BUNDLE BRANCH BLOCK RIGHT [None]
